FAERS Safety Report 9177478 (Version 1)
Quarter: 2013Q1

REPORT INFORMATION
  Report Type: Spontaneous
  Country: IT (occurrence: None)
  Receive Date: 20130319
  Receipt Date: 20130319
  Transmission Date: 20140127
  Serious: Yes (Hospitalization)
  Sender: FDA-Public Use
  Company Number: 2013-04773

PATIENT
  Age: 57 Year
  Sex: Male

DRUGS (1)
  1. PARACETAMOL (UNKNOWN) ( PARACETAMOL) UNK, UNKUNK [Suspect]
     Indication: PYREXIA
     Dosage: 1 DF, SINGLE, ORAL
     Route: 048
     Dates: start: 20130302, end: 20130302

REACTIONS (1)
  - Rash [None]
